FAERS Safety Report 10090572 (Version 2)
Quarter: 2014Q2

REPORT INFORMATION
  Report Type: Spontaneous
  Country: US (occurrence: US)
  Receive Date: 20140421
  Receipt Date: 20140509
  Transmission Date: 20141212
  Serious: Yes (Hospitalization, Other)
  Sender: FDA-Public Use
  Company Number: US-BAYER-2014-056703

PATIENT
  Age: 40 Year
  Sex: Female

DRUGS (5)
  1. YAZ [Suspect]
  2. ANAPROX DS [Concomitant]
     Dosage: 550 MG, UNK
     Dates: start: 20060829
  3. OXYCODONE/APAP [Concomitant]
     Dosage: 5/325 TAB
     Dates: start: 20060928
  4. ELAVIL [Concomitant]
     Dosage: UNK
     Dates: start: 20060923
  5. AMITRIPTYLINE [Concomitant]
     Dosage: UNK
     Dates: start: 20060923

REACTIONS (3)
  - Deep vein thrombosis [None]
  - Pulmonary embolism [None]
  - Cholelithiasis [None]
